FAERS Safety Report 7517160-6 (Version None)
Quarter: 2011Q2

REPORT INFORMATION
  Report Type: 
  Country: None (occurrence: None)
  Receive Date: 20110601
  Receipt Date: 20110528
  Transmission Date: 20111010
  Serious: Yes (Other)
  Sender: FDA-Public Use
  Company Number: DE-PFIZER INC-2011116108

PATIENT
  Sex: Male

DRUGS (3)
  1. ESCITALOPRAM [Suspect]
  2. DOXEPIN HCL [Suspect]
  3. VARENICLINE TARTRATE [Suspect]

REACTIONS (4)
  - CONFUSIONAL STATE [None]
  - HEART RATE INCREASED [None]
  - HYPERTENSION [None]
  - FEELING OF DESPAIR [None]
